FAERS Safety Report 7972020-1 (Version None)
Quarter: 2011Q4

REPORT INFORMATION
  Report Type: 
  Country: None (occurrence: None)
  Receive Date: 20111212
  Receipt Date: 20111207
  Transmission Date: 20120403
  Serious: Yes (Other)
  Sender: FDA-Public Use
  Company Number: GB-PFIZER INC-K201100693

PATIENT
  Sex: Female
  Weight: 124.72 kg

DRUGS (5)
  1. ESCITALOPRAM [Concomitant]
     Indication: ANXIETY
     Dosage: 10 MG, 1X/DAY
  2. ALTACE [Suspect]
     Indication: RENAL VESSEL DISORDER
     Dosage: UNK
     Route: 048
  3. SEROQUEL [Suspect]
     Indication: SCHIZOAFFECTIVE DISORDER BIPOLAR TYPE
     Dosage: 450 MG, 1X/DAY
     Route: 048
  4. VALPROATE SODIUM [Concomitant]
     Indication: AFFECTIVE DISORDER
     Dosage: 800 MG, 1X/DAY
  5. SEROQUEL [Suspect]
     Dosage: 350 MG, 1X/DAY
     Route: 048

REACTIONS (5)
  - DIVERTICULITIS [None]
  - ANXIETY [None]
  - DIZZINESS [None]
  - DIARRHOEA [None]
  - ORTHOSTATIC HYPOTENSION [None]
